FAERS Safety Report 5115622-2 (Version None)
Quarter: 2006Q3

REPORT INFORMATION
  Report Type: 
  Country: None (occurrence: None)
  Receive Date: 20060925
  Receipt Date: 20060909
  Transmission Date: 20061208
  Serious: Yes (Hospitalization)
  Sender: FDA-Public Use
  Company Number: A-NJ2006-13048

PATIENT
  Age: 86 Year
  Sex: Female

DRUGS (2)
  1. TRACLEER [Suspect]
     Indication: PULMONARY HYPERTENSION
  2. LEVAQUIN [Suspect]

REACTIONS (16)
  - ALANINE AMINOTRANSFERASE INCREASED [None]
  - ASPARTATE AMINOTRANSFERASE INCREASED [None]
  - BLOOD BILIRUBIN INCREASED [None]
  - DRUG INTERACTION [None]
  - DYSPNOEA [None]
  - FURUNCLE [None]
  - MALAISE [None]
  - MYALGIA [None]
  - ORAL MUCOSAL EXFOLIATION [None]
  - ORAL SOFT TISSUE DISORDER [None]
  - PYREXIA [None]
  - RALES [None]
  - RENAL FAILURE [None]
  - SERUM SICKNESS [None]
  - VIRAL INFECTION [None]
  - WHITE BLOOD CELL COUNT INCREASED [None]
